FAERS Safety Report 4347535-8 (Version None)
Quarter: 2004Q2

REPORT INFORMATION
  Report Type: 
  Country: None (occurrence: None)
  Receive Date: 20040426
  Receipt Date: 20040426
  Transmission Date: 20050107
  Serious: No
  Sender: FDA-Public Use
  Company Number: None

PATIENT
  Age: 46 Year
  Sex: Female

DRUGS (2)
  1. LEVOFLOXACIN [Suspect]
     Indication: UPPER RESPIRATORY TRACT INFECTION
     Dosage: 500 MG Q24H INTRAVENOUS
     Route: 042
     Dates: start: 20040422, end: 20040423
  2. MESTINON [Suspect]
     Indication: MYASTHENIA GRAVIS
     Dosage: 120 MG Q3H ORAL
     Route: 048
     Dates: start: 19950101, end: 20040423

REACTIONS (4)
  - CONDITION AGGRAVATED [None]
  - DRUG INTERACTION [None]
  - MEDICATION ERROR [None]
  - MYASTHENIA GRAVIS [None]
